FAERS Safety Report 5343336-2 (Version None)
Quarter: 2007Q2

REPORT INFORMATION
  Report Type: 
  Country: None (occurrence: None)
  Receive Date: 20070503
  Receipt Date: 20060524
  Transmission Date: 20071010
  Serious: Yes (Other)
  Sender: FDA-Public Use
  Company Number: US200603002624

PATIENT
  Age: 16 Year
  Sex: Male
  Weight: 39.9 kg

DRUGS (2)
  1. HUMATROPE [Suspect]
     Indication: NOONAN SYNDROME
     Dosage: SEE IMAGE
     Dates: start: 20021201
  2. HUMATROPEN (HUMATROPEN) [Concomitant]

REACTIONS (5)
  - DIARRHOEA [None]
  - DRUG INEFFECTIVE [None]
  - DYSPEPSIA [None]
  - SCOLIOSIS [None]
  - STOMACH DISCOMFORT [None]
